FAERS Safety Report 9909147 (Version 1)
Quarter: 2014Q1

REPORT INFORMATION
  Report Type: Spontaneous
  Country: US (occurrence: None)
  Receive Date: 20140214
  Receipt Date: 20140214
  Transmission Date: 20141002
  Serious: No
  Sender: FDA-Public Use
  Company Number: None

PATIENT
  Age: 52 Year
  Sex: Male

DRUGS (3)
  1. ASENAPINE [Suspect]
     Route: 048
  2. OLANZAPINE [Concomitant]
  3. CLOZAPINE [Concomitant]

REACTIONS (2)
  - Restlessness [None]
  - Cogwheel rigidity [None]
